FAERS Safety Report 13355757 (Version 1)
Quarter: 2017Q1

REPORT INFORMATION
  Report Type: Spontaneous
  Country: US (occurrence: US)
  Receive Date: 20170321
  Receipt Date: 20170321
  Transmission Date: 20170429
  Serious: Yes (Other)
  Sender: FDA-Public Use
  Company Number: US-INCYTE CORPORATION-2017IN001992

PATIENT
  Sex: Female

DRUGS (1)
  1. JAKAFI [Suspect]
     Active Substance: RUXOLITINIB
     Indication: MYELOFIBROSIS
     Dosage: 10 MG, BID
     Route: 048
     Dates: start: 20170102

REACTIONS (5)
  - Cerebrovascular accident [Unknown]
  - Melanocytic naevus [Unknown]
  - Hypertension [Unknown]
  - Lower limb fracture [Unknown]
  - Feeling abnormal [Unknown]
